FAERS Safety Report 6745518-1 (Version None)
Quarter: 2010Q2

REPORT INFORMATION
  Report Type: 
  Country: None (occurrence: None)
  Receive Date: 20100528
  Receipt Date: 20100524
  Transmission Date: 20101027
  Serious: Yes (Death, Other)
  Sender: FDA-Public Use
  Company Number: CN-JNJFOC-20100508998

PATIENT
  Age: 60 Year
  Sex: Male

DRUGS (4)
  1. IMODIUM [Suspect]
     Indication: DIARRHOEA
     Route: 048
  2. IMODIUM [Suspect]
     Route: 048
  3. IMODIUM [Suspect]
     Route: 048
  4. IMODIUM [Suspect]
     Route: 048

REACTIONS (1)
  - DYSPNOEA [None]
